FAERS Safety Report 5082860-7 (Version None)
Quarter: 2006Q3

REPORT INFORMATION
  Report Type: 
  Country: None (occurrence: None)
  Receive Date: 20060817
  Receipt Date: 20060808
  Transmission Date: 20061208
  Serious: Yes (Hospitalization, Other)
  Sender: FDA-Public Use
  Company Number: US-ABBOTT-06P-163-0339805-00

PATIENT
  Age: 48 Year
  Sex: Male

DRUGS (8)
  1. HYDROMORPHONE HCL [Suspect]
     Indication: ANKYLOSING SPONDYLITIS
     Route: 037
  2. HYDROMORPHONE HCL [Suspect]
     Indication: OSTEOPOROSIS
  3. HYDROMORPHONE HCL [Suspect]
     Indication: SPINAL FRACTURE
  4. HYDROMORPHONE HCL [Suspect]
     Indication: BACK PAIN
  5. BUPIVACAINE [Suspect]
     Indication: ANKYLOSING SPONDYLITIS
     Route: 037
  6. BUPIVACAINE [Suspect]
     Indication: OSTEOPOROSIS
  7. BUPIVACAINE [Suspect]
     Indication: SPINAL FRACTURE
  8. BUPIVACAINE [Suspect]
     Indication: BACK PAIN

REACTIONS (1)
  - MASS [None]
